FAERS Safety Report 4715845-8 (Version None)
Quarter: 2005Q3

REPORT INFORMATION
  Report Type: 
  Country: None (occurrence: None)
  Receive Date: 20050718
  Receipt Date: 20050706
  Transmission Date: 20060218
  Serious: Yes (Hospitalization)
  Sender: FDA-Public Use
  Company Number: FR-BRISTOL-MYERS SQUIBB COMPANY-13030887

PATIENT
  Age: 45 Year
  Sex: Male
  Weight: 60 kg

DRUGS (7)
  1. BUSPAR [Suspect]
     Indication: ANXIETY
     Route: 048
     Dates: start: 20050413
  2. EQUANIL [Suspect]
     Indication: ANXIETY
     Dates: start: 20050413
  3. OXAZEPAM [Suspect]
     Indication: ANXIETY
     Dates: start: 20050413
  4. GARDENAL [Suspect]
     Indication: EPILEPSY
     Dates: start: 20050406
  5. TEGRETOL [Suspect]
     Indication: EPILEPSY
     Dates: start: 19930101
  6. TIAPRIDAL [Suspect]
     Dates: start: 20030501
  7. PARKINANE [Concomitant]

REACTIONS (1)
  - STATUS EPILEPTICUS [None]
